FAERS Safety Report 7999663-3 (Version None)
Quarter: 2011Q4

REPORT INFORMATION
  Report Type: 
  Country: None (occurrence: None)
  Receive Date: 20111221
  Receipt Date: 20111212
  Transmission Date: 20120403
  Serious: Yes (Other)
  Sender: FDA-Public Use
  Company Number: US-ASTRAZENECA-2011SE75069

PATIENT
  Age: 50 Year
  Sex: Female
  Weight: 64.9 kg

DRUGS (7)
  1. SEROQUEL XR [Suspect]
     Indication: DEPRESSION
     Route: 048
  2. BENADRYL [Concomitant]
  3. SONAGRAND [Concomitant]
  4. XANAX [Concomitant]
  5. SEROQUEL XR [Suspect]
     Indication: PANIC ATTACK
     Route: 048
  6. TEGRETOL [Concomitant]
  7. SEROQUEL XR [Suspect]
     Indication: ANXIETY
     Route: 048

REACTIONS (6)
  - TREMOR [None]
  - CONVULSION [None]
  - OFF LABEL USE [None]
  - LOSS OF CONSCIOUSNESS [None]
  - MALAISE [None]
  - DRUG DOSE OMISSION [None]
